FAERS Safety Report 7543657-9 (Version None)
Quarter: 2011Q2

REPORT INFORMATION
  Report Type: 
  Country: None (occurrence: None)
  Receive Date: 20110613
  Receipt Date: 20030606
  Transmission Date: 20111010
  Serious: Yes (Death, Other)
  Sender: FDA-Public Use
  Company Number: PHNR2003AU00841

PATIENT
  Sex: Female

DRUGS (4)
  1. CLOZARIL [Suspect]
     Indication: SCHIZOPHRENIA
     Dosage: 500MG/DAY
     Route: 048
     Dates: start: 20010806
  2. ATORVASTATIN [Concomitant]
  3. RANITIDINE [Concomitant]
  4. PERINDOPRIL ERBUMINE [Concomitant]

REACTIONS (2)
  - SEPSIS [None]
  - INTESTINAL OBSTRUCTION [None]
